FAERS Safety Report 24718221 (Version 5)
Quarter: 2025Q3

REPORT INFORMATION
  Report Type: Report from Study
  Country: US (occurrence: US)
  Receive Date: 20241210
  Receipt Date: 20250926
  Transmission Date: 20251020
  Serious: Yes (Hospitalization)
  Sender: SPRINGWORKS THERAPEUTIC
  Company Number: US-SPRINGWORKS THERAPEUTICS-SW-002122

PATIENT
  Age: 70 Year
  Sex: Female
  Weight: 77.098 kg

DRUGS (5)
  1. NIROGACESTAT [Suspect]
     Active Substance: NIROGACESTAT
     Indication: Desmoid tumour
     Dosage: 150 MILLIGRAM, BID
     Route: 048
     Dates: start: 20240920
  2. NIROGACESTAT [Suspect]
     Active Substance: NIROGACESTAT
     Dosage: 150 MILLIGRAM, BID
     Route: 048
     Dates: start: 20241101, end: 20241121
  3. NIROGACESTAT [Suspect]
     Active Substance: NIROGACESTAT
  4. NIROGACESTAT [Suspect]
     Active Substance: NIROGACESTAT
     Dosage: 100 MILLIGRAM, BID
     Route: 048
     Dates: end: 202501
  5. NIROGACESTAT [Suspect]
     Active Substance: NIROGACESTAT
     Dosage: 100 MILLIGRAM, BID
     Route: 048
     Dates: start: 20250410, end: 20250630

REACTIONS (19)
  - Renal failure [Unknown]
  - Total lung capacity decreased [Unknown]
  - Tremor [Recovered/Resolved]
  - Hypersensitivity [Recovered/Resolved]
  - Nasopharyngitis [Recovered/Resolved]
  - Night sweats [Unknown]
  - Vomiting [Unknown]
  - Neoplasm progression [Unknown]
  - Dry mouth [Not Recovered/Not Resolved]
  - Pruritus [Recovered/Resolved]
  - Cough [Unknown]
  - Epistaxis [Unknown]
  - Dyspnoea [Not Recovered/Not Resolved]
  - Nausea [Unknown]
  - Diarrhoea [Not Recovered/Not Resolved]
  - Blood potassium decreased [Unknown]
  - Hypokalaemia [Unknown]
  - Incorrect dose administered [Unknown]
  - Therapy cessation [Unknown]

NARRATIVE: CASE EVENT DATE: 20241115
